FAERS Safety Report 5990724-7 (Version None)
Quarter: 2008Q4

REPORT INFORMATION
  Report Type: 
  Country: None (occurrence: None)
  Receive Date: 20081211
  Receipt Date: 20081204
  Transmission Date: 20090506
  Serious: Yes (Hospitalization)
  Sender: FDA-Public Use
  Company Number: PHHY2008JP31062

PATIENT

DRUGS (3)
  1. SANDIMMUNE [Suspect]
     Indication: INTERSTITIAL LUNG DISEASE
     Dosage: UNK
  2. SANDIMMUNE [Suspect]
  3. DIPRIVAN [Concomitant]
     Dosage: UNK

REACTIONS (3)
  - BLOOD PRESSURE INCREASED [None]
  - TACHYCARDIA [None]
  - TREMOR [None]
